FAERS Safety Report 6091247-X (Version None)
Quarter: 2009Q1

REPORT INFORMATION
  Report Type: 
  Country: None (occurrence: None)
  Receive Date: 20090223
  Receipt Date: 20090213
  Transmission Date: 20090719
  Serious: Yes (Hospitalization)
  Sender: FDA-Public Use
  Company Number: 2009SP003607

PATIENT
  Age: 47 Year
  Sex: Female

DRUGS (2)
  1. TEMODAL [Suspect]
     Indication: GLIOBLASTOMA
     Dosage: 150 MG/M2
     Dates: start: 20090101
  2. DEXAMETHASONE [Concomitant]

REACTIONS (1)
  - PULMONARY EMBOLISM [None]
